FAERS Safety Report 14159320 (Version 2)
Quarter: 2017Q4

REPORT INFORMATION
  Report Type: Spontaneous
  Country: JP (occurrence: JP)
  Receive Date: 20171103
  Receipt Date: 20171120
  Transmission Date: 20180321
  Serious: Yes (Death, Life-Threatening, Hospitalization, Other)
  Sender: FDA-Public Use
  Company Number: JP-DEPOMED, INC.-JP-2017DEP002153

PATIENT
  Age: 77 Year
  Sex: Male
  Weight: 56 kg

DRUGS (21)
  1. TAPENTADOL HYDROCHLORIDE [Suspect]
     Active Substance: TAPENTADOL HYDROCHLORIDE
     Dosage: 125 MG, BID
     Route: 048
     Dates: start: 20170707, end: 20170806
  2. ABSTRAL [Concomitant]
     Active Substance: FENTANYL CITRATE
     Indication: CANCER PAIN
     Dosage: UNK
     Dates: start: 20170703, end: 20170703
  3. PREDNISOLONE. [Concomitant]
     Active Substance: PREDNISOLONE
     Indication: INTERSTITIAL LUNG DISEASE
     Dosage: UNK
     Dates: start: 20170711, end: 20170904
  4. LANSOPRAZOLE. [Concomitant]
     Active Substance: LANSOPRAZOLE
     Indication: GASTROOESOPHAGEAL REFLUX DISEASE
     Dosage: UNK
     Dates: end: 20170904
  5. TAPENTADOL HYDROCHLORIDE [Suspect]
     Active Substance: TAPENTADOL HYDROCHLORIDE
     Indication: CANCER PAIN
     Dosage: 100 MG, BID
     Route: 048
     Dates: start: 20170703, end: 20170706
  6. TAPENTADOL HYDROCHLORIDE [Suspect]
     Active Substance: TAPENTADOL HYDROCHLORIDE
     Dosage: 150 MG, BID
     Route: 048
     Dates: start: 20170807, end: 20170820
  7. OXINORM                            /00045603/ [Concomitant]
     Active Substance: OXYCODONE HYDROCHLORIDE
     Dosage: UNK
     Dates: start: 20170703, end: 20170704
  8. BROTIZOLAM [Concomitant]
     Active Substance: BROTIZOLAM
     Indication: INSOMNIA
     Dosage: UNK
     Dates: end: 20170904
  9. TAPENTADOL HYDROCHLORIDE [Suspect]
     Active Substance: TAPENTADOL HYDROCHLORIDE
     Dosage: 175 MG, BID
     Route: 048
     Dates: start: 20170821, end: 20170822
  10. OXINORM                            /00045603/ [Concomitant]
     Active Substance: OXYCODONE HYDROCHLORIDE
     Indication: CANCER PAIN
     Dosage: UNK
     Dates: start: 20170706, end: 20170706
  11. MORPHINE HYDROCHLORIDE [Concomitant]
     Active Substance: MORPHINE HYDROCHLORIDE
     Indication: CANCER PAIN
     Dosage: UNK
     Dates: start: 20170908, end: 20170913
  12. FENTOS [Concomitant]
     Active Substance: FENTANYL
     Indication: CANCER PAIN
     Dosage: UNK
     Dates: start: 20170905, end: 20170907
  13. OXINORM                            /00045603/ [Concomitant]
     Active Substance: OXYCODONE HYDROCHLORIDE
     Dosage: UNK
     Dates: start: 20170705, end: 20170705
  14. LOXOPROFEN [Concomitant]
     Active Substance: LOXOPROFEN
     Indication: CANCER PAIN
     Dosage: UNK
     Dates: end: 20170904
  15. ABSTRAL [Concomitant]
     Active Substance: FENTANYL CITRATE
     Dosage: UNK
     Dates: start: 20170702, end: 20170702
  16. TENELIA [Concomitant]
     Active Substance: TENELIGLIPTIN
     Indication: DIABETES MELLITUS
     Dosage: UNK
     Dates: end: 20170904
  17. PURSENNID                          /00571902/ [Concomitant]
     Active Substance: SENNOSIDES A AND B
     Indication: CONSTIPATION
     Dosage: UNK
     Dates: end: 20170904
  18. OXYCONTIN [Concomitant]
     Active Substance: OXYCODONE HYDROCHLORIDE
     Indication: CANCER PAIN
     Dosage: UNK
     Dates: start: 20170902, end: 20170904
  19. TAPENTADOL HYDROCHLORIDE [Suspect]
     Active Substance: TAPENTADOL HYDROCHLORIDE
     Dosage: 200 MG, BID
     Route: 048
     Dates: start: 20170823, end: 20170901
  20. FENTOS [Concomitant]
     Active Substance: FENTANYL
     Dosage: UNK
     Dates: start: 20170616, end: 20170703
  21. PREDNISOLONE. [Concomitant]
     Active Substance: PREDNISOLONE
     Indication: MALAISE
     Dosage: UNK
     Dates: end: 20170702

REACTIONS (5)
  - Constipation [Recovering/Resolving]
  - General physical health deterioration [Fatal]
  - Cachexia [Not Recovered/Not Resolved]
  - Nocturia [Recovering/Resolving]
  - Dysphagia [Not Recovered/Not Resolved]

NARRATIVE: CASE EVENT DATE: 20170713
